FAERS Safety Report 10655177 (Version 1)
Quarter: 2014Q4

REPORT INFORMATION
  Report Type: Spontaneous
  Country: GB (occurrence: GB)
  Receive Date: 20141216
  Receipt Date: 20141216
  Transmission Date: 20150529
  Serious: Yes (Other)
  Sender: FDA-Public Use
  Company Number: GB-WATSON-2014-26468

PATIENT
  Age: 15 Year
  Sex: Male
  Weight: 49 kg

DRUGS (3)
  1. CITALOPRAM [Suspect]
     Active Substance: CITALOPRAM HYDROBROMIDE
     Indication: DEPRESSION
     Dosage: 10 MG, DAILY
     Route: 048
     Dates: start: 20141119, end: 20141125
  2. CETIRIZINE [Concomitant]
     Active Substance: CETIRIZINE HYDROCHLORIDE
     Indication: PRODUCT USED FOR UNKNOWN INDICATION
     Dosage: UNK
     Route: 065
  3. CLARITHROMYCIN. [Concomitant]
     Active Substance: CLARITHROMYCIN
     Indication: PRODUCT USED FOR UNKNOWN INDICATION
     Dosage: UNK
     Route: 065

REACTIONS (6)
  - Sleep terror [Unknown]
  - Depressed mood [Unknown]
  - Condition aggravated [Unknown]
  - Amnesia [Unknown]
  - Disturbance in attention [Unknown]
  - Hallucinations, mixed [Unknown]

NARRATIVE: CASE EVENT DATE: 20141119
